FAERS Safety Report 4389298-6 (Version None)
Quarter: 2004Q2

REPORT INFORMATION
  Report Type: 
  Country: None (occurrence: None)
  Receive Date: 20040628
  Receipt Date: 20040618
  Transmission Date: 20050107
  Serious: Yes (Other)
  Sender: FDA-Public Use
  Company Number: 2004041665

PATIENT
  Age: 17 Year
  Sex: Female

DRUGS (1)
  1. BENADRYL [Suspect]
     Dosage: 18 TABS AT ONCE, ORAL
     Route: 048
     Dates: start: 20040618, end: 20040618

REACTIONS (2)
  - DIZZINESS [None]
  - INTENTIONAL OVERDOSE [None]
